FAERS Safety Report 18424248 (Version 1)
Quarter: 2020Q4

REPORT INFORMATION
  Report Type: Spontaneous
  Country: US (occurrence: US)
  Receive Date: 20201025
  Receipt Date: 20201025
  Transmission Date: 20210114
  Serious: Yes (Other)
  Sender: FDA-Public Use
  Company Number: US-NAPPMUNDI-USA-2020-0151736

PATIENT
  Sex: Male

DRUGS (1)
  1. OXYCODONE HYDROCHLORIDE (SIMILAR TO NDA 22-272) [Suspect]
     Active Substance: OXYCODONE HYDROCHLORIDE
     Indication: PAIN
     Dosage: 30 MG, TID
     Route: 048
     Dates: start: 2017

REACTIONS (6)
  - Drug withdrawal syndrome [Unknown]
  - Insomnia [Unknown]
  - Quality of life decreased [Unknown]
  - Decreased appetite [Unknown]
  - Drug dependence [Unknown]
  - Cold sweat [Unknown]

NARRATIVE: CASE EVENT DATE: 2017
